FAERS Safety Report 5338743-8 (Version None)
Quarter: 2007Q2

REPORT INFORMATION
  Report Type: 
  Country: None (occurrence: None)
  Receive Date: 20070328
  Receipt Date: 20061201
  Transmission Date: 20071010
  Serious: Yes (Hospitalization)
  Sender: FDA-Public Use
  Company Number: 13598222

PATIENT

DRUGS (1)
  1. EMSAM [Suspect]
     Dosage: TOP

REACTIONS (1)
  - HOSPITALISATION [None]
